FAERS Safety Report 12099330 (Version 1)
Quarter: 2016Q1

REPORT INFORMATION
  Report Type: Spontaneous
  Country: US (occurrence: None)
  Receive Date: 20160219
  Receipt Date: 20160219
  Transmission Date: 20160526
  Serious: No
  Sender: FDA-Public Use
  Company Number: None

PATIENT
  Age: 65 Year
  Sex: Female
  Weight: 52.16 kg

DRUGS (10)
  1. LAMICTAL [Concomitant]
     Active Substance: LAMOTRIGINE
  2. VIT. D+K [Concomitant]
  3. CYTOMEL [Concomitant]
     Active Substance: LIOTHYRONINE SODIUM
  4. SYNTHROID [Concomitant]
     Active Substance: LEVOTHYROXINE SODIUM
  5. OXYBUTYNIN [Concomitant]
     Active Substance: OXYBUTYNIN
  6. FISH OIL [Concomitant]
     Active Substance: FISH OIL
  7. LAMOTRIGINE. [Suspect]
     Active Substance: LAMOTRIGINE
     Indication: CEREBRAL DISORDER
     Dosage: 100 MG, 2, PROBLEM DAILY OK AT BEDTIME, MOUTH
     Dates: start: 201508
  8. MULTIVITAMIN [Concomitant]
     Active Substance: VITAMINS
  9. COQ10 [Concomitant]
     Active Substance: UBIDECARENONE
  10. PROBIOTIC [Concomitant]
     Active Substance: PROBIOTICS NOS

REACTIONS (5)
  - Asthenopia [None]
  - Visual acuity reduced [None]
  - Reading disorder [None]
  - Coordination abnormal [None]
  - Intraocular pressure increased [None]

NARRATIVE: CASE EVENT DATE: 201508
